FAERS Safety Report 4339656-0 (Version None)
Quarter: 2004Q1

REPORT INFORMATION
  Report Type: 
  Country: None (occurrence: None)
  Receive Date: 20040329
  Receipt Date: 20040106
  Transmission Date: 20041129
  Serious: No
  Sender: FDA-Public Use
  Company Number: 04P-163-0246276-00

PATIENT
  Age: 55 Year
  Sex: Female
  Weight: 123.3784 kg

DRUGS (13)
  1. HUMIRA [Suspect]
     Indication: RHEUMATOID ARTHRITIS
     Dosage: 40 MG, 1 IN 2 WK, SUBCUTANEOUS
     Route: 058
     Dates: start: 20031219
  2. LISINOPRIL [Concomitant]
  3. HYDRALAZINE HCL [Concomitant]
  4. GLIMEPIRIDE [Concomitant]
  5. PREDNISONE [Concomitant]
  6. POTASSIUM CHLORIDE [Concomitant]
  7. CARVEDILOL [Concomitant]
  8. ISOSORBIDE MONONITRATE [Concomitant]
  9. ALDACTAZIDE-A [Concomitant]
  10. ZETIA [Concomitant]
  11. LANSOPRAZOLE [Concomitant]
  12. RISEDRONATE SODIUM [Concomitant]
  13. CHROMATEN 14 [Concomitant]

REACTIONS (3)
  - ABDOMINAL PAIN [None]
  - HAEMORRHOIDS [None]
  - RECTAL HAEMORRHAGE [None]
